FAERS Safety Report 5594795-1 (Version None)
Quarter: 2008Q1

REPORT INFORMATION
  Report Type: 
  Country: None (occurrence: None)
  Receive Date: 20080117
  Receipt Date: 20080111
  Transmission Date: 20080703
  Serious: Yes (Disabling)
  Sender: FDA-Public Use
  Company Number: B0497874A

PATIENT
  Age: 62 Year
  Sex: Male
  Weight: 77 kg

DRUGS (3)
  1. AVANDAMET [Suspect]
     Dosage: 1TAB TWICE PER DAY
     Route: 048
     Dates: start: 20050101, end: 20071001
  2. DIAMICRON [Concomitant]
     Dosage: 30MG TWICE PER DAY
     Route: 048
     Dates: start: 20041001
  3. NOVONORM [Concomitant]
     Route: 048
     Dates: start: 20020301

REACTIONS (3)
  - HYPOAESTHESIA [None]
  - NERVE ROOT LESION [None]
  - PARAESTHESIA [None]
